FAERS Safety Report 5334446-4 (Version None)
Quarter: 2007Q2

REPORT INFORMATION
  Report Type: 
  Country: None (occurrence: None)
  Receive Date: 20070523
  Receipt Date: 20070523
  Transmission Date: 20071010
  Serious: Yes (Other)
  Sender: FDA-Public Use
  Company Number: None

PATIENT
  Age: 63 Year
  Sex: Female
  Weight: 84.8226 kg

DRUGS (1)
  1. DOCUSATE SODIUM [Suspect]
     Indication: CONSTIPATION
     Dosage: 1-2 CAPSULES DAILY
     Dates: start: 20070515, end: 20070520

REACTIONS (1)
  - DIARRHOEA [None]
